FAERS Safety Report 9493355 (Version 7)
Quarter: 2014Q1

REPORT INFORMATION
  Report Type: Report from Study
  Country: CA (occurrence: CA)
  Receive Date: 20130902
  Receipt Date: 20140322
  Transmission Date: 20141002
  Serious: Yes (Other)
  Sender: FDA-Public Use
  Company Number: PHHY2013CA046890

PATIENT
  Age: 61 Year
  Sex: Male

DRUGS (5)
  1. SANDOSTATIN LAR [Suspect]
     Indication: SMALL INTESTINE CARCINOMA METASTATIC
     Dosage: 30 MG, EVERY 4 WEEKS
     Route: 030
     Dates: start: 20130508
  2. COVERSYL [Concomitant]
     Dosage: UNK UKN, UNK
  3. COVERSYL [Concomitant]
     Dosage: UNK UKN, UNK
  4. COVERSYL [Concomitant]
     Dosage: 8 MG, UNK
  5. COVERSYL [Concomitant]
     Dosage: 4 MG, UNK
     Dates: start: 201306

REACTIONS (7)
  - Blood pressure diastolic decreased [Unknown]
  - Diarrhoea [Not Recovered/Not Resolved]
  - Hypertension [Unknown]
  - Emotional distress [Unknown]
  - Flatulence [Recovered/Resolved]
  - Dizziness [Recovered/Resolved]
  - Heart rate decreased [Unknown]
